FAERS Safety Report 8051070-3 (Version None)
Quarter: 2012Q1

REPORT INFORMATION
  Report Type: 
  Country: None (occurrence: None)
  Receive Date: 20120117
  Receipt Date: 20120110
  Transmission Date: 20120608
  Serious: Yes (Hospitalization, Other)
  Sender: FDA-Public Use
  Company Number: PHEH2011US07958

PATIENT
  Sex: Female

DRUGS (4)
  1. DIGOXIN [Concomitant]
  2. GILENYA [Suspect]
     Indication: MULTIPLE SCLEROSIS
     Dosage: 0.5 MG, QD
     Route: 048
     Dates: start: 20111026
  3. ATENOLOL AND CHLORTHALIDONE [Concomitant]
     Dosage: 1 DF, BID
  4. GILENYA [Suspect]
     Dosage: 0.5 MG, QD
     Route: 048
     Dates: start: 20111112

REACTIONS (6)
  - SOMNOLENCE [None]
  - GRAND MAL CONVULSION [None]
  - HEADACHE [None]
  - BRADYCARDIA [None]
  - PYREXIA [None]
  - FATIGUE [None]
